FAERS Safety Report 8964365 (Version 1)
Quarter: 2012Q4

REPORT INFORMATION
  Report Type: 
  Country: US (occurrence: US)
  Receive Date: 20121214
  Receipt Date: 20121214
  Transmission Date: 20130627
  Serious: No
  Sender: FDA-Public Use
  Company Number: US-GLAXOSMITHKLINE-A0976974A

PATIENT
  Age: 52 Year
  Sex: Male

DRUGS (1)
  1. AVODART [Suspect]
     Indication: PROSTATITIS
     Route: 048
     Dates: start: 201203

REACTIONS (1)
  - Drug ineffective [Not Recovered/Not Resolved]
